FAERS Safety Report 9309990 (Version 2)
Quarter: 2013Q3

REPORT INFORMATION
  Report Type: Spontaneous
  Country: DE (occurrence: DE)
  Receive Date: 20130527
  Receipt Date: 20130718
  Transmission Date: 20140515
  Serious: Yes (Hospitalization)
  Sender: FDA-Public Use
  Company Number: DE-BIOGENIDEC-2013BI046300

PATIENT
  Age: 53 Year
  Sex: Male
  Weight: 110 kg

DRUGS (1)
  1. AVONEX [Suspect]
     Indication: MULTIPLE SCLEROSIS
     Route: 030
     Dates: start: 20120503

REACTIONS (2)
  - Urethral neoplasm [Not Recovered/Not Resolved]
  - Ureteric cancer [Not Recovered/Not Resolved]
